FAERS Safety Report 9306091 (Version 1)
Quarter: 2013Q2

REPORT INFORMATION
  Report Type: Spontaneous
  Country: US (occurrence: None)
  Receive Date: 20130515
  Receipt Date: 20130515
  Transmission Date: 20140414
  Serious: Yes (Other)
  Sender: FDA-Public Use
  Company Number: 2013035854

PATIENT
  Sex: Female
  Weight: 87.09 kg

DRUGS (19)
  1. HIZENTRA (IMMUNOGLOBULIN HUMAN NORMAL) [Suspect]
     Indication: IMMUNODEFICIENCY COMMON VARIABLE
     Route: 058
  2. DIPHENHYDRAMINE (DIPHENHYDRAMINE) [Concomitant]
  3. EPINEPHRINE (EPINEPHRINE) [Concomitant]
  4. LIDOCAINE PRILOCAINE (EMLA/00675501) [Concomitant]
  5. IBUPROFEN (IBUPROFEN) [Concomitant]
  6. PROBIOTIC (LACTOBACILLUS ACIDOPHILUS) [Concomitant]
  7. MILK THISTLE (ALL OTHER THERAPEUTIC PRODUCTS) [Concomitant]
  8. GLUCO CHOND MSM (CHONDROITIN W/GLUCOSAMINE) [Concomitant]
  9. FIORINAL W/CODEINE (FIORINAL-C 1/4/00141301) [Concomitant]
  10. VALTREX (VALACICLOVIR HYDROCHLORIDE) [Concomitant]
  11. EFFEXOR XR (VENLAFAXINE HYDROCHLORIDE) (75 MILLIGRAM, CAPSULE) (VENLAFAXINE HYDROCHLORIDE) [Concomitant]
  12. XANAX (ALPRAZOLAM) [Concomitant]
  13. TRAZODONE (TRAZODONE) [Concomitant]
  14. FLAXSEED OIL (LINUM USITATISSIMUM SEED OIL) [Concomitant]
  15. MULTIVITAMIN (ACCOMIN MULTIVITAMIN) [Concomitant]
  16. DYAZIDE (DYAZIDE) [Concomitant]
  17. LAMICTAL (LAMOTRIGINE) TABLET [Concomitant]
  18. SEROQUEL (QUETIAPINE), 50 MG [Concomitant]
  19. FLEXERIL (CLCOBENZAPRINE HYDROCHLORIDE) [Concomitant]

REACTIONS (4)
  - Skin reaction [None]
  - Malaise [None]
  - Rash [None]
  - Candida infection [None]
